FAERS Safety Report 15991931 (Version 3)
Quarter: 2019Q1

REPORT INFORMATION
  Report Type: Spontaneous
  Country: JP (occurrence: JP)
  Receive Date: 20190221
  Receipt Date: 20190314
  Transmission Date: 20190418
  Serious: Yes (Other)
  Sender: FDA-Public Use
  Company Number: PHJP2019JP002198

PATIENT
  Age: 69 Year
  Sex: Female

DRUGS (3)
  1. DUOTRAV COMBINATION OPHTHALMIC SOLUTION [Suspect]
     Active Substance: TIMOLOL MALEATE\TRAVOPROST
     Dosage: 1 GTT, QD
     Route: 047
     Dates: start: 20190215, end: 20190219
  2. GLANATEC [Concomitant]
     Active Substance: RIPASUDIL HYDROCHLORIDE DIHYDRATE
     Indication: NORMAL TENSION GLAUCOMA
     Dosage: 1 GTT, BID
     Route: 047
     Dates: start: 20170804
  3. DUOTRAV COMBINATION OPHTHALMIC SOLUTION [Suspect]
     Active Substance: TIMOLOL MALEATE\TRAVOPROST
     Indication: NORMAL TENSION GLAUCOMA
     Dosage: 1 GTT, QD
     Route: 047
     Dates: start: 20180312, end: 20190213

REACTIONS (8)
  - Eye pain [Unknown]
  - Herpes zoster [Unknown]
  - Viral uveitis [Not Recovered/Not Resolved]
  - Headache [Recovering/Resolving]
  - Blister [Recovering/Resolving]
  - Herpes ophthalmic [Not Recovered/Not Resolved]
  - Glaucoma [Not Recovered/Not Resolved]
  - Conjunctivitis allergic [Unknown]

NARRATIVE: CASE EVENT DATE: 20190212
